FAERS Safety Report 14490897 (Version 3)
Quarter: 2018Q2

REPORT INFORMATION
  Report Type: Spontaneous
  Country: US (occurrence: US)
  Receive Date: 20180206
  Receipt Date: 20180426
  Transmission Date: 20180711
  Serious: Yes (Hospitalization)
  Sender: FDA-Public Use
  Company Number: US-PFIZER INC-2018049230

PATIENT
  Age: 72 Year
  Sex: Male
  Weight: 77 kg

DRUGS (4)
  1. ADVIL [Suspect]
     Active Substance: IBUPROFEN
     Indication: PROPHYLAXIS
     Dosage: 200 MG ^USED 3 DF  IN 12 HOUR INCREMENTS FOR 1 AND 1/2 DAYS^
  2. ADVIL [Suspect]
     Active Substance: IBUPROFEN
     Indication: PAIN
     Dosage: UNK
  3. PRAVASTATIN. [Concomitant]
     Active Substance: PRAVASTATIN
     Dosage: 20 MG, UNK
  4. ADVIL [Suspect]
     Active Substance: IBUPROFEN
     Dosage: 200 MG, 1X/DAY
     Dates: start: 20180131, end: 20180201

REACTIONS (4)
  - Dermatitis [Not Recovered/Not Resolved]
  - Intentional product use issue [Unknown]
  - Blister [Recovered/Resolved]
  - Pruritus [Recovered/Resolved]

NARRATIVE: CASE EVENT DATE: 20180131
